FAERS Safety Report 7611509-1 (Version None)
Quarter: 2011Q3

REPORT INFORMATION
  Report Type: 
  Country: None (occurrence: None)
  Receive Date: 20110715
  Receipt Date: 20110706
  Transmission Date: 20111222
  Serious: Yes (Disabling, Other)
  Sender: FDA-Public Use
  Company Number: US-PFIZER INC-2011123019

PATIENT
  Sex: Female
  Weight: 63.492 kg

DRUGS (1)
  1. PRISTIQ [Suspect]
     Indication: DEPRESSION
     Dosage: UNK
     Route: 048
     Dates: start: 20110101

REACTIONS (8)
  - LOSS OF CONSCIOUSNESS [None]
  - DIZZINESS [None]
  - SLEEP DISORDER [None]
  - LIBIDO DECREASED [None]
  - FALL [None]
  - CONSTIPATION [None]
  - ANXIETY [None]
  - INSOMNIA [None]
